FAERS Safety Report 4632527-1 (Version None)
Quarter: 2005Q2

REPORT INFORMATION
  Report Type: 
  Country: None (occurrence: None)
  Receive Date: 20050408
  Receipt Date: 20050329
  Transmission Date: 20051028
  Serious: Yes (Hospitalization)
  Sender: FDA-Public Use
  Company Number: 05-03-0531

PATIENT
  Age: 83 Year
  Sex: Female

DRUGS (8)
  1. PROBENECID + COLCHICINE [Suspect]
     Indication: GOUT
     Dosage: 0.6MG; QD
  2. ASPIRIN [Concomitant]
  3. BUMETANIDE [Concomitant]
  4. METOPROLOL TARTRATE [Concomitant]
  5. LOSARTAN POTASSIUM [Concomitant]
  6. AMLODIPINE [Concomitant]
  7. REPAGLINIDE [Concomitant]
  8. PREDNISONE [Concomitant]

REACTIONS (6)
  - ACTIVITIES OF DAILY LIVING IMPAIRED [None]
  - ANOREXIA [None]
  - ASTHENIA [None]
  - DIARRHOEA [None]
  - MYALGIA [None]
  - MYOPATHY [None]
